FAERS Safety Report 16426629 (Version 1)
Quarter: 2019Q3

REPORT INFORMATION
  Report Type: Spontaneous
  Country: US (occurrence: US)
  Receive Date: 20190612
  Receipt Date: 20190612
  Transmission Date: 20191004
  Serious: Yes (Hospitalization)
  Sender: FDA-Public Use
  Company Number: None

PATIENT
  Sex: Female

DRUGS (15)
  1. AZATHRIOPRINE [Concomitant]
  2. ESCITALOPRAM [Concomitant]
     Active Substance: ESCITALOPRAM OXALATE
  3. INSULIN [Concomitant]
     Active Substance: INSULIN NOS
  4. METRONIDAZOL [Concomitant]
     Active Substance: METRONIDAZOLE
  5. NORETHINDRON [Concomitant]
  6. DIPHENHYDRAMINE. [Concomitant]
     Active Substance: DIPHENHYDRAMINE
  7. GAMUNEX-C [Suspect]
     Active Substance: HUMAN IMMUNOGLOBULIN G
     Indication: MAST CELL ACTIVATION SYNDROME
     Dosage: ?          OTHER FREQUENCY:AS DIRECTED;?
     Route: 058
     Dates: start: 20190117
  8. POLY IRON [Concomitant]
     Active Substance: DIETARY SUPPLEMENT
  9. ,FLUCONAZOLE [Concomitant]
  10. VERAPAMIL [Concomitant]
     Active Substance: VERAPAMIL HYDROCHLORIDE
  11. XIFAXAN [Concomitant]
     Active Substance: RIFAXIMIN
  12. ALOSETRON [Concomitant]
     Active Substance: ALOSETRON
  13. GAMUNEX-C [Suspect]
     Active Substance: HUMAN IMMUNOGLOBULIN G
     Indication: MAST CELL ACTIVATION SYNDROME
     Dosage: ?          OTHER FREQUENCY:AS DIRECTED;?
     Route: 058
     Dates: start: 20190117
  14. XOLAIR [Concomitant]
     Active Substance: OMALIZUMAB
  15. LANSOPRAZOLE. [Concomitant]
     Active Substance: LANSOPRAZOLE

REACTIONS (1)
  - Infection [None]
